FAERS Safety Report 4631550-0 (Version None)
Quarter: 2005Q2

REPORT INFORMATION
  Report Type: 
  Country: None (occurrence: None)
  Receive Date: 20050407
  Receipt Date: 20050331
  Transmission Date: 20051028
  Serious: Yes (Hospitalization, Other)
  Sender: FDA-Public Use
  Company Number: 2005035471

PATIENT
  Age: 71 Year
  Sex: Female

DRUGS (11)
  1. LIPITOR [Suspect]
     Indication: HYPERCHOLESTEROLAEMIA
     Dosage: 10 MG (10 MG, 1 N 1 D), ORAL
     Route: 048
     Dates: start: 20041101, end: 20050213
  2. BROMAZEPAM (BROMAZEPAM) [Concomitant]
  3. ISOSORBIDE DINITRATE [Concomitant]
  4. AMLODIPINE [Concomitant]
  5. LOSARTAN  (LOSARTAN) [Concomitant]
  6. BETAHISTINE (BETAHISTINE) [Concomitant]
  7. REBAMIPIDE (REMABIPIDE) [Concomitant]
  8. TICLOPIDINE (TICLOPIDINE) [Concomitant]
  9. LEVOTHYROXINE SODIUM [Concomitant]
  10. ALL OTHER THERAPEUTIC PRODUCTS (ALL OTHER THERAPEUTIC PRODUCTS) [Concomitant]
  11. ISOSORBIDE DINITRATE [Concomitant]

REACTIONS (2)
  - HEPATIC STEATOSIS [None]
  - LIVER DISORDER [None]
